FAERS Safety Report 6179666-4 (Version None)
Quarter: 2009Q2

REPORT INFORMATION
  Report Type: 
  Country: None (occurrence: None)
  Receive Date: 20090505
  Receipt Date: 20090429
  Transmission Date: 20091009
  Serious: Yes (Other)
  Sender: FDA-Public Use
  Company Number: US-ROXANE LABORATORIES, INC.-2009-RO-00424RO

PATIENT
  Age: 44 Year
  Sex: Female

DRUGS (2)
  1. ZOLPIDEM [Suspect]
     Indication: INSOMNIA
  2. ZOLPIDEM [Suspect]
     Dosage: 15MG

REACTIONS (2)
  - DRUG INEFFECTIVE [None]
  - SOMNAMBULISM [None]
